FAERS Safety Report 7007116-4 (Version None)
Quarter: 2010Q3

REPORT INFORMATION
  Report Type: 
  Country: None (occurrence: None)
  Receive Date: 20100922
  Receipt Date: 20100913
  Transmission Date: 20110219
  Serious: Yes (Hospitalization, Disabling)
  Sender: FDA-Public Use
  Company Number: ES-JNJFOC-20100903524

PATIENT
  Sex: Male
  Weight: 43 kg

DRUGS (1)
  1. CONCERTA [Suspect]
     Indication: ATTENTION DEFICIT/HYPERACTIVITY DISORDER
     Route: 048

REACTIONS (3)
  - HEMIPARESIS [None]
  - ISCHAEMIC CEREBRAL INFARCTION [None]
  - VASCULITIS [None]
